FAERS Safety Report 5197118-5 (Version None)
Quarter: 2007Q1

REPORT INFORMATION
  Report Type: 
  Country: None (occurrence: None)
  Receive Date: 20070103
  Receipt Date: 20070102
  Transmission Date: 20070707
  Serious: Yes (Death, Hospitalization)
  Sender: FDA-Public Use
  Company Number: US-GLAXOSMITHKLINE-A0617575A

PATIENT
  Age: 36 Year
  Sex: Male
  Weight: 90.9 kg

DRUGS (7)
  1. PAXIL [Suspect]
     Indication: DEPRESSION
     Dosage: 40MG PER DAY
     Route: 048
     Dates: start: 19940203, end: 20040115
  2. PAROXETINE HYDROCHLORIDE [Suspect]
     Indication: DEPRESSION
     Dosage: 40MG PER DAY
     Route: 048
     Dates: start: 20040804, end: 20040815
  3. PROPULSID [Concomitant]
  4. PRILOSEC [Concomitant]
  5. AMBIEN [Concomitant]
  6. TRILEPTAL [Concomitant]
     Dates: start: 20040126, end: 20040318
  7. ZYPREXA [Concomitant]
     Dates: start: 20040301

REACTIONS (17)
  - AFFECT LABILITY [None]
  - AGITATION [None]
  - ANXIETY [None]
  - COMPLETED SUICIDE [None]
  - CONFUSIONAL STATE [None]
  - DELIRIUM [None]
  - DEPRESSION [None]
  - ENCEPHALITIS [None]
  - FATIGUE [None]
  - FLUSHING [None]
  - MENTAL STATUS CHANGES [None]
  - MOOD SWINGS [None]
  - PSYCHOTIC DISORDER [None]
  - PYREXIA [None]
  - SINUS TACHYCARDIA [None]
  - SOMNOLENCE [None]
  - WEIGHT INCREASED [None]
